FAERS Safety Report 11750866 (Version 1)
Quarter: 2015Q4

REPORT INFORMATION
  Report Type: Spontaneous
  Country: US (occurrence: US)
  Receive Date: 20151118
  Receipt Date: 20151118
  Transmission Date: 20160304
  Serious: No
  Sender: FDA-Public Use
  Company Number: US-NOVOPROD-461478

PATIENT
  Age: 80 Year
  Sex: Male

DRUGS (2)
  1. LEVEMIR [Concomitant]
     Active Substance: INSULIN DETEMIR
     Indication: TYPE 2 DIABETES MELLITUS
     Dosage: UNK, QD
     Route: 058
  2. NOVOLOG [Suspect]
     Active Substance: INSULIN ASPART
     Indication: TYPE 2 DIABETES MELLITUS
     Dosage: 22 U, QD, (5-7 YEARS OF USE) (8 UNITS AT BREAKFAST, 6 UNITS AT LUNCH, 8 UNITS AT DINNER)
     Route: 058

REACTIONS (2)
  - Intentional device misuse [Not Recovered/Not Resolved]
  - Dizziness [Not Recovered/Not Resolved]
